FAERS Safety Report 10058475 (Version 2)
Quarter: 2014Q2

REPORT INFORMATION
  Report Type: Spontaneous
  Country: DE (occurrence: DE)
  Receive Date: 20140404
  Receipt Date: 20140512
  Transmission Date: 20141212
  Serious: Yes (Hospitalization)
  Sender: FDA-Public Use
  Company Number: PHHY2014DE039529

PATIENT
  Sex: Male

DRUGS (2)
  1. DIOVAN [Suspect]
     Dosage: 40 MG, UNK
  2. BELOC-ZOK [Concomitant]
     Dosage: 23.75 MG, UNK

REACTIONS (3)
  - Road traffic accident [Recovered/Resolved]
  - Spinal fracture [Recovered/Resolved]
  - Weight decreased [Recovered/Resolved]
